FAERS Safety Report 7308407-X (Version None)
Quarter: 2011Q1

REPORT INFORMATION
  Report Type: 
  Country: None (occurrence: None)
  Receive Date: 20110223
  Receipt Date: 20110217
  Transmission Date: 20110831
  Serious: Yes (Death)
  Sender: FDA-Public Use
  Company Number: US-CELGENEUS-163-21880-11022135

PATIENT
  Sex: Male

DRUGS (16)
  1. K-DUR [Concomitant]
     Route: 065
  2. METFORMIN [Concomitant]
     Route: 065
  3. NOVOLOG [Concomitant]
     Route: 065
  4. LANTUS [Concomitant]
     Route: 065
  5. REVLIMID [Suspect]
     Indication: MULTIPLE MYELOMA
     Route: 048
     Dates: start: 20101001
  6. REVLIMID [Suspect]
     Route: 048
     Dates: start: 20090801
  7. ASA [Concomitant]
     Route: 065
  8. DIOVAN [Concomitant]
     Route: 065
  9. GLIPIZIDE [Concomitant]
     Route: 065
  10. PLAVIX [Concomitant]
     Route: 065
  11. COREG [Concomitant]
     Route: 065
  12. ZOMETA [Concomitant]
     Route: 065
  13. LIPITOR [Concomitant]
     Route: 065
  14. DEXAMETHASONE [Concomitant]
     Route: 065
  15. FUROSEMIDE [Concomitant]
     Route: 065
  16. SPIRONOLACTONE [Concomitant]
     Route: 065

REACTIONS (1)
  - DEATH [None]
